FAERS Safety Report 6392351-9 (Version None)
Quarter: 2009Q4

REPORT INFORMATION
  Report Type: 
  Country: None (occurrence: None)
  Receive Date: 20091007
  Receipt Date: 20090929
  Transmission Date: 20100525
  Serious: Yes (Hospitalization)
  Sender: FDA-Public Use
  Company Number: PHHO2009DE11947

PATIENT
  Sex: Female
  Weight: 49 kg

DRUGS (1)
  1. RAD 666 RAD+TAB [Suspect]
     Indication: RENAL TRANSPLANT
     Dosage: 0.75MG/2-0-2
     Route: 048

REACTIONS (2)
  - DRUG INEFFECTIVE [None]
  - TRANSPLANT REJECTION [None]
